FAERS Safety Report 24762038 (Version 1)
Quarter: 2024Q4

REPORT INFORMATION
  Report Type: Spontaneous
  Country: RU (occurrence: RU)
  Receive Date: 20241221
  Receipt Date: 20241221
  Transmission Date: 20250114
  Serious: Yes (Other)
  Sender: HETERO
  Company Number: RU-AMAROX PHARMA-HET2024RU04774

PATIENT
  Sex: Female
  Weight: 49 kg

DRUGS (1)
  1. LEVETIRACETAM [Suspect]
     Active Substance: LEVETIRACETAM
     Indication: Epilepsy
     Dosage: UNK
     Route: 048
     Dates: start: 20240822, end: 20240824

REACTIONS (5)
  - Epilepsy [Recovered/Resolved]
  - Disorientation [Recovered/Resolved]
  - Body temperature increased [Recovered/Resolved]
  - Diplopia [Recovered/Resolved]
  - Rash [Recovered/Resolved]

NARRATIVE: CASE EVENT DATE: 20240715
